FAERS Safety Report 4448563-4 (Version None)
Quarter: 2004Q3

REPORT INFORMATION
  Report Type: 
  Country: None (occurrence: None)
  Receive Date: 20040909
  Receipt Date: 20040818
  Transmission Date: 20050211
  Serious: Yes (Hospitalization, Other)
  Sender: FDA-Public Use
  Company Number: 8739

PATIENT
  Age: 42 Year
  Sex: Male

DRUGS (15)
  1. METHOTREXATE [Suspect]
     Indication: NON-HODGKIN'S LYMPHOMA STAGE IV
     Dates: start: 20031030, end: 20031030
  2. METHOTREXATE [Suspect]
     Indication: NON-HODGKIN'S LYMPHOMA STAGE IV
     Dates: start: 20031121, end: 20031121
  3. METHOTREXATE [Suspect]
     Indication: NON-HODGKIN'S LYMPHOMA STAGE IV
     Dates: start: 20031212, end: 20031212
  4. METHOTREXATE [Suspect]
     Indication: NON-HODGKIN'S LYMPHOMA STAGE IV
     Dates: start: 20040102, end: 20040102
  5. METHOTREXATE [Suspect]
     Indication: NON-HODGKIN'S LYMPHOMA STAGE IV
     Dates: start: 20040123, end: 20040123
  6. METHOTREXATE [Suspect]
     Indication: NON-HODGKIN'S LYMPHOMA STAGE IV
     Dates: start: 20040213, end: 20040213
  7. CYTARABINE [Suspect]
     Indication: NON-HODGKIN'S LYMPHOMA STAGE IV
     Dates: start: 20040330, end: 20040401
  8. ETOPOSIDE [Suspect]
     Indication: NON-HODGKIN'S LYMPHOMA STAGE IV
     Dates: start: 20040330, end: 20040401
  9. NEURONTIN [Suspect]
     Indication: NEUROPATHIC PAIN
     Dosage: 100 MG TID
     Dates: start: 20040719, end: 20040723
  10. CYCLOPHOSPHAMIDE [Concomitant]
  11. DOXORUBICIN [Concomitant]
  12. VINCRISTINE [Concomitant]
  13. PREDNISONE [Concomitant]
  14. RITUXIMAB [Concomitant]
  15. CARMUSTINE [Concomitant]

REACTIONS (13)
  - AREFLEXIA [None]
  - BACK PAIN [None]
  - CEREBELLAR SYNDROME [None]
  - INTERVERTEBRAL DISC DISORDER [None]
  - NERVOUS SYSTEM DISORDER [None]
  - NEUROPATHIC PAIN [None]
  - NYSTAGMUS [None]
  - PAIN IN EXTREMITY [None]
  - PARAESTHESIA [None]
  - QUADRIPARESIS [None]
  - SENSORY DISTURBANCE [None]
  - STEM CELL TRANSPLANT [None]
  - VESTIBULAR DISORDER [None]
